FAERS Safety Report 12892778 (Version 1)
Quarter: 2016Q4

REPORT INFORMATION
  Report Type: Spontaneous
  Country: US (occurrence: US)
  Receive Date: 20161028
  Receipt Date: 20161028
  Transmission Date: 20170207
  Serious: No
  Sender: FDA-Public Use
  Company Number: US-BRACCO-013927

PATIENT

DRUGS (1)
  1. BARIUM SULPHATE [Suspect]
     Active Substance: BARIUM SULFATE
     Indication: BARIUM SWALLOW
     Route: 048
     Dates: start: 201609, end: 201609

REACTIONS (3)
  - Product colour issue [Unknown]
  - No adverse event [Recovered/Resolved]
  - Accidental exposure to product [Recovered/Resolved]
